FAERS Safety Report 6550526-X (Version None)
Quarter: 2010Q1

REPORT INFORMATION
  Report Type: 
  Country: None (occurrence: None)
  Receive Date: 20100125
  Receipt Date: 20100118
  Transmission Date: 20100710
  Serious: Yes (Hospitalization)
  Sender: FDA-Public Use
  Company Number: B0626620A

PATIENT
  Sex: Female

DRUGS (4)
  1. LAMICTAL [Suspect]
     Indication: EPILEPSY
     Route: 048
     Dates: start: 20091005, end: 20091020
  2. DEPAKINE CHRONO [Suspect]
     Indication: EPILEPSY
     Dosage: 1500MG PER DAY
     Route: 048
     Dates: start: 20091001
  3. PHYSIOTENS [Suspect]
     Indication: HYPERTENSION
     Dosage: .4MG PER DAY
     Route: 048
     Dates: start: 20090801, end: 20091128
  4. LEVOTHYROXINE SODIUM [Concomitant]

REACTIONS (10)
  - APHTHOUS STOMATITIS [None]
  - CHEILITIS [None]
  - DIZZINESS [None]
  - ENANTHEMA [None]
  - INCORRECT DOSE ADMINISTERED [None]
  - LEUKOPENIA [None]
  - LICHENOID KERATOSIS [None]
  - RASH ERYTHEMATOUS [None]
  - RASH MACULO-PAPULAR [None]
  - TOXIC SKIN ERUPTION [None]
